FAERS Safety Report 6973408-8 (Version None)
Quarter: 2010Q3

REPORT INFORMATION
  Report Type: 
  Country: None (occurrence: None)
  Receive Date: 20100909
  Receipt Date: 20100830
  Transmission Date: 20110219
  Serious: Yes (Other)
  Sender: FDA-Public Use
  Company Number: US-PFIZER INC-2010067744

PATIENT
  Sex: Female
  Weight: 70.295 kg

DRUGS (5)
  1. LIPITOR [Suspect]
     Indication: HYPERLIPIDAEMIA
     Dosage: 40 MG, 1X/DAY, AT HS
     Route: 048
     Dates: start: 20090209, end: 20090101
  2. PRAVASTATIN [Suspect]
     Indication: HYPERLIPIDAEMIA
     Dosage: 40 MG, 1X/DAY AT HS
     Route: 048
     Dates: start: 20090408, end: 20090101
  3. PRAVASTATIN [Suspect]
     Route: 048
     Dates: start: 20090408
  4. COENZYME Q10 [Concomitant]
     Dosage: 100 MG, UNK, AFTER EACH MEAL DAILY
  5. CENTRUM SILVER [Concomitant]
     Dosage: UNK

REACTIONS (5)
  - ARTHRALGIA [None]
  - ASTHENIA [None]
  - DRUG INEFFECTIVE [None]
  - GAIT DISTURBANCE [None]
  - MYALGIA [None]
